FAERS Safety Report 15260624 (Version 2)
Quarter: 2018Q3

REPORT INFORMATION
  Report Type: Report from Study
  Country: US (occurrence: US)
  Receive Date: 20180809
  Receipt Date: 20180904
  Transmission Date: 20181010
  Serious: Yes (Other)
  Sender: FDA-Public Use
  Company Number: PHEH2018US031718

PATIENT
  Sex: Male

DRUGS (2)
  1. SANDOSTATIN LAR DEPOT [Suspect]
     Active Substance: OCTREOTIDE ACETATE
     Indication: PRODUCT USED FOR UNKNOWN INDICATION
     Route: 065
  2. AFINITOR [Suspect]
     Active Substance: EVEROLIMUS
     Indication: PRODUCT USED FOR UNKNOWN INDICATION
     Route: 065

REACTIONS (15)
  - Suicidal ideation [Unknown]
  - Disease progression [Unknown]
  - Blood pressure abnormal [Unknown]
  - Diabetes mellitus [Unknown]
  - Aphonia [Unknown]
  - Gait disturbance [Unknown]
  - Weight decreased [Unknown]
  - Feeling abnormal [Unknown]
  - Neoplasm malignant [Unknown]
  - Fatigue [Unknown]
  - Psychiatric symptom [Unknown]
  - Feeling of despair [Unknown]
  - Depression [Unknown]
  - Malaise [Unknown]
  - Asthenia [Unknown]
